FAERS Safety Report 10289941 (Version 1)
Quarter: 2014Q3

REPORT INFORMATION
  Report Type: Spontaneous
  Country: US (occurrence: None)
  Receive Date: 20140708
  Receipt Date: 20140708
  Transmission Date: 20150326
  Serious: Yes (Death)
  Sender: FDA-Public Use
  Company Number: US-ALSI-201400141

PATIENT
  Age: 47 Year
  Sex: Female

DRUGS (1)
  1. NITROGEN. [Suspect]
     Active Substance: NITROGEN
     Dosage: RESPIRATORY
     Dates: start: 20140701

REACTIONS (5)
  - Asphyxia [None]
  - Homicide [None]
  - Exposure via inhalation [None]
  - Loss of consciousness [None]
  - Completed suicide [None]

NARRATIVE: CASE EVENT DATE: 20140701
